FAERS Safety Report 5121824-1 (Version None)
Quarter: 2006Q4

REPORT INFORMATION
  Report Type: 
  Country: None (occurrence: None)
  Receive Date: 20061006
  Receipt Date: 20061002
  Transmission Date: 20070319
  Serious: Yes (Hospitalization)
  Sender: FDA-Public Use
  Company Number: AR-ROCHE-465613

PATIENT
  Sex: Male

DRUGS (1)
  1. ROACCUTAN [Suspect]
     Indication: ACNE
     Dosage: STRENGTH AND FORMULATION REPORTED AS 20/40 MG.
     Route: 048
     Dates: start: 20060815, end: 20060921

REACTIONS (1)
  - SACROILIITIS [None]
